FAERS Safety Report 25852634 (Version 1)
Quarter: 2025Q3

REPORT INFORMATION
  Report Type: Spontaneous
  Country: US (occurrence: None)
  Receive Date: 20250925
  Receipt Date: 20250925
  Transmission Date: 20251021
  Serious: Yes (Hospitalization, Disabling, Congenital Anomaly)
  Sender: FDA-CTU
  Company Number: None

PATIENT
  Sex: Female

DRUGS (1)
  1. ZOFRAN [Suspect]
     Active Substance: ONDANSETRON HYDROCHLORIDE
     Dates: start: 20120601, end: 20131209

REACTIONS (3)
  - Product use issue [None]
  - Product prescribing issue [None]
  - Victim of abuse [None]

NARRATIVE: CASE EVENT DATE: 20131209
